FAERS Safety Report 4608271-3 (Version None)
Quarter: 2005Q1

REPORT INFORMATION
  Report Type: 
  Country: None (occurrence: None)
  Receive Date: 20050311
  Receipt Date: 20050301
  Transmission Date: 20050727
  Serious: Yes (Hospitalization)
  Sender: FDA-Public Use
  Company Number: CIP05000481

PATIENT
  Age: 74 Year
  Sex: Female

DRUGS (1)
  1. OPTINATE            (RISEDRONATE SODIUM) [Suspect]
     Indication: OSTEOPOROSIS
     Dosage: 35 MG ONCE WEEKLY, ORAL
     Route: 048
     Dates: start: 20041117, end: 20041124

REACTIONS (10)
  - ARTERITIS [None]
  - C-REACTIVE PROTEIN INCREASED [None]
  - CHILLS [None]
  - DISEASE RECURRENCE [None]
  - FEELING ABNORMAL [None]
  - MUSCULOSKELETAL STIFFNESS [None]
  - PAIN [None]
  - POLYMYALGIA [None]
  - PYREXIA [None]
  - RED BLOOD CELL SEDIMENTATION RATE INCREASED [None]
